FAERS Safety Report 7009886-8 (Version None)
Quarter: 2010Q3

REPORT INFORMATION
  Report Type: 
  Country: None (occurrence: None)
  Receive Date: 20100923
  Receipt Date: 20100916
  Transmission Date: 20110219
  Serious: Yes (Hospitalization)
  Sender: FDA-Public Use
  Company Number: DE-ROCHE-728700

PATIENT
  Sex: Male
  Weight: 90 kg

DRUGS (5)
  1. RIBAVIRIN [Suspect]
     Route: 048
     Dates: start: 20100209, end: 20100630
  2. RIBAVIRIN [Suspect]
     Route: 048
     Dates: start: 20100701, end: 20100714
  3. RIBAVIRIN [Suspect]
     Route: 048
     Dates: start: 20100715, end: 20100729
  4. RIBAVIRIN [Suspect]
     Route: 048
     Dates: start: 20100730
  5. PEGINTERFERON ALFA-2A [Suspect]
     Route: 058
     Dates: start: 20100209

REACTIONS (3)
  - ANAEMIA [None]
  - LEUKOPENIA [None]
  - WEIGHT DECREASED [None]
